FAERS Safety Report 4340109-4 (Version None)
Quarter: 2004Q2

REPORT INFORMATION
  Report Type: 
  Country: None (occurrence: None)
  Receive Date: 20040416
  Receipt Date: 20040416
  Transmission Date: 20050107
  Serious: Yes (Other)
  Sender: FDA-Public Use
  Company Number: None

PATIENT
  Sex: Female
  Weight: 52.1637 kg

DRUGS (2)
  1. FOLLISTIM [Suspect]
     Indication: INFERTILITY
     Dosage: 150 IU QD SUBCUTANEOUS
     Route: 058
     Dates: start: 20040406, end: 20040408
  2. FOLLISTIM [Suspect]
     Dosage: 75 IU QD SUBCUTANEOUS
     Route: 058
     Dates: start: 20040409, end: 20040414

REACTIONS (4)
  - ERYTHEMA [None]
  - INDURATION [None]
  - PRURITUS [None]
  - SKIN WARM [None]
